FAERS Safety Report 25892949 (Version 2)
Quarter: 2025Q4

REPORT INFORMATION
  Report Type: Report from Study
  Country: US (occurrence: US)
  Receive Date: 20251007
  Receipt Date: 20251120
  Transmission Date: 20260117
  Serious: Yes (Other)
  Sender: ABBVIE
  Company Number: US-ABBVIE-6488873

PATIENT
  Age: 36 Year
  Sex: Male

DRUGS (2)
  1. RINVOQ [Suspect]
     Active Substance: UPADACITINIB
     Indication: Crohn^s disease
     Dosage: FORM STRENGTH: 30 MG
     Route: 048
     Dates: start: 20250706, end: 20251009
  2. RINVOQ [Suspect]
     Active Substance: UPADACITINIB
     Indication: Crohn^s disease
     Dosage: FORM STRENGTH: 45MG
     Route: 048
     Dates: start: 20251010

REACTIONS (5)
  - Intestinal haemorrhage [Recovering/Resolving]
  - Fatigue [Recovering/Resolving]
  - Flatulence [Unknown]
  - Crohn^s disease [Recovering/Resolving]
  - Frequent bowel movements [Unknown]

NARRATIVE: CASE EVENT DATE: 20250101
